FAERS Safety Report 22968009 (Version 2)
Quarter: 2023Q4

REPORT INFORMATION
  Report Type: Report from Study
  Country: HN (occurrence: None)
  Receive Date: 20230921
  Receipt Date: 20231018
  Transmission Date: 20240109
  Serious: Yes (Other)
  Sender: FDA-Public Use
  Company Number: 2023A210522

PATIENT
  Sex: Female

DRUGS (1)
  1. XIGDUO XR [Suspect]
     Active Substance: DAPAGLIFLOZIN PROPANEDIOL\METFORMIN HYDROCHLORIDE
     Dosage: 5MG/1000MG ONE DOSE DAILY PO.
     Route: 048

REACTIONS (4)
  - Renal injury [Unknown]
  - Vulvovaginal dryness [Unknown]
  - Eye disorder [Unknown]
  - Vaginal infection [Unknown]
